FAERS Safety Report 15966382 (Version 2)
Quarter: 2019Q1

REPORT INFORMATION
  Report Type: Spontaneous
  Country: US (occurrence: US)
  Receive Date: 20190215
  Receipt Date: 20190218
  Transmission Date: 20190418
  Serious: Yes (Death)
  Sender: FDA-Public Use
  Company Number: US-LUNDBECK-DKLU2060562

PATIENT
  Age: 65 Year
  Sex: Male

DRUGS (7)
  1. LEVOTHYROXINE. [Concomitant]
     Active Substance: LEVOTHYROXINE
     Indication: HYPOTHYROIDISM
     Route: 065
     Dates: start: 1996, end: 20190211
  2. NORTHERA [Suspect]
     Active Substance: DROXIDOPA
     Indication: DIABETES MELLITUS
     Route: 048
     Dates: start: 20161130
  3. INSULIN GLARGINE [Concomitant]
     Active Substance: INSULIN GLARGINE
     Indication: DIABETES MELLITUS
     Route: 065
     Dates: start: 2005, end: 20190211
  4. NORTHERA [Suspect]
     Active Substance: DROXIDOPA
     Route: 048
     Dates: end: 20190209
  5. VENLAFAXINE [Concomitant]
     Active Substance: VENLAFAXINE HYDROCHLORIDE
     Indication: DEPRESSION
     Route: 065
     Dates: start: 2017, end: 20190211
  6. LEVECETAM [Concomitant]
     Indication: SEIZURE
     Route: 065
     Dates: start: 2018, end: 20190211
  7. NORTHERA [Suspect]
     Active Substance: DROXIDOPA
     Indication: AUTONOMIC NERVOUS SYSTEM IMBALANCE
     Route: 048

REACTIONS (2)
  - Pneumonia aspiration [Fatal]
  - Osteonecrosis of jaw [Fatal]

NARRATIVE: CASE EVENT DATE: 20190205
